FAERS Safety Report 4861144-3 (Version None)
Quarter: 2005Q4

REPORT INFORMATION
  Report Type: 
  Country: None (occurrence: None)
  Receive Date: 20051220
  Receipt Date: 20051216
  Transmission Date: 20060501
  Serious: Yes (Hospitalization)
  Sender: FDA-Public Use
  Company Number: FR-SANOFI-SYNTHELABO-F01200502806

PATIENT
  Sex: Male
  Weight: 68 kg

DRUGS (6)
  1. FLUOROURACIL [Suspect]
     Indication: OESOPHAGEAL CARCINOMA
     Route: 042
  2. CISPLATIN [Suspect]
     Route: 042
  3. RADIOTHERAPY [Concomitant]
     Indication: OESOPHAGEAL CARCINOMA
     Dosage: TOTAL DOSE OF FRACTION ADMINISTERED BEFORE SAE: 50 GY
     Route: 050
     Dates: end: 20051201
  4. TEMESTA [Concomitant]
     Indication: ANXIETY
     Route: 048
     Dates: start: 20051121, end: 20051125
  5. SOLU-MEDROL [Concomitant]
     Indication: NAUSEA
     Route: 048
     Dates: start: 20051123, end: 20051130
  6. PRIMPERAN INJ [Concomitant]
     Indication: NAUSEA
     Route: 048
     Dates: start: 20051123, end: 20051130

REACTIONS (4)
  - DYSPHAGIA [None]
  - MUCOSAL INFLAMMATION [None]
  - OESOPHAGEAL PAIN [None]
  - WEIGHT DECREASED [None]
